FAERS Safety Report 6872046-5 (Version None)
Quarter: 2010Q3

REPORT INFORMATION
  Report Type: 
  Country: None (occurrence: None)
  Receive Date: 20100723
  Receipt Date: 20100714
  Transmission Date: 20110219
  Serious: Yes (Other)
  Sender: FDA-Public Use
  Company Number: CA-JNJFOC-20100706711

PATIENT
  Sex: Female
  Weight: 127 kg

DRUGS (3)
  1. REMICADE [Suspect]
     Indication: PSORIASIS
     Route: 042
  2. LUVOX [Concomitant]
  3. DICETEL [Concomitant]

REACTIONS (3)
  - HEPATIC ENZYME INCREASED [None]
  - MALAISE [None]
  - WEIGHT DECREASED [None]
